FAERS Safety Report 16947497 (Version 2)
Quarter: 2020Q3

REPORT INFORMATION
  Report Type: Spontaneous
  Country: GB (occurrence: GB)
  Receive Date: 20191022
  Receipt Date: 20200928
  Transmission Date: 20201102
  Serious: Yes (Death)
  Sender: FDA-Public Use
  Company Number: GB-AMGEN-GBRNI2019097076

PATIENT
  Age: 55 Year
  Sex: Female

DRUGS (11)
  1. XGEVA [Suspect]
     Active Substance: DENOSUMAB
     Indication: PRODUCT USED FOR UNKNOWN INDICATION
     Dosage: 120 MILLIGRAM, Q6WK
     Route: 058
     Dates: start: 20130831, end: 20190606
  2. LETROZOLE. [Suspect]
     Active Substance: LETROZOLE
     Indication: BREAST CANCER METASTATIC
     Dosage: 2.5 MILLIGRAM, QD
     Route: 048
     Dates: start: 20190320
  3. ACICLOVIR [Concomitant]
     Active Substance: ACYCLOVIR
     Dosage: 400 MILLIGRAM, QD
     Route: 048
  4. TRASTUZUMAB. [Suspect]
     Active Substance: TRASTUZUMAB
     Dosage: 441 MILLIGRAM, Q3WK
     Route: 042
     Dates: start: 20181227, end: 20190606
  5. LEVOTHYROXINE. [Concomitant]
     Active Substance: LEVOTHYROXINE
     Dosage: 75 MICROGRAM, QD
     Route: 048
     Dates: start: 2003
  6. TRASTUZUMAB EMTANSINE [Suspect]
     Active Substance: ADO-TRASTUZUMAB EMTANSINE
     Indication: BREAST CANCER METASTATIC
     Dosage: 250 MILLIGRAM, Q3WK
     Route: 058
     Dates: start: 20170831, end: 20181025
  7. CAPECITABINE. [Suspect]
     Active Substance: CAPECITABINE
     Indication: BREAST CANCER METASTATIC
     Dosage: 4600 MILLIGRAM, QD
     Route: 048
     Dates: start: 20181115, end: 20190108
  8. CAPECITABINE. [Suspect]
     Active Substance: CAPECITABINE
     Dosage: 3600 MILLIGRAM, QD
     Route: 048
     Dates: start: 20190117, end: 20190301
  9. PYRIDOXINE [Concomitant]
     Active Substance: PYRIDOXINE
     Indication: ERYTHEMA
     Dosage: 40 MILLIGRAM, QD
     Route: 048
     Dates: start: 201901
  10. TRASTUZUMAB. [Suspect]
     Active Substance: TRASTUZUMAB
     Indication: BREAST CANCER METASTATIC
     Dosage: 588 MILLIGRAM, Q3WK
     Route: 042
     Dates: start: 20181115, end: 20181227
  11. DEXAMETHASONE. [Concomitant]
     Active Substance: DEXAMETHASONE
     Dosage: 2 MILLIGRAM, QD
     Route: 048
     Dates: start: 20190320

REACTIONS (4)
  - Purpura [Fatal]
  - Death [Fatal]
  - Erythema [Unknown]
  - Varicella zoster virus infection [Fatal]

NARRATIVE: CASE EVENT DATE: 20190108
